FAERS Safety Report 10656975 (Version 2)
Quarter: 2015Q1

REPORT INFORMATION
  Report Type: Spontaneous
  Country: US (occurrence: None)
  Receive Date: 20141215
  Receipt Date: 20150126
  Transmission Date: 20150720
  Serious: Yes (Other)
  Sender: FDA-Public Use
  Company Number: 2014-US-016052

PATIENT
  Age: 24 Year
  Sex: Female

DRUGS (1)
  1. XYREM [Suspect]
     Active Substance: SODIUM OXYBATE
     Indication: NARCOLEPSY
     Route: 048
     Dates: start: 201206, end: 201208

REACTIONS (4)
  - Caesarean section [None]
  - Pregnancy [None]
  - Umbilical cord prolapse [None]
  - Exposure during pregnancy [None]

NARRATIVE: CASE EVENT DATE: 201307
